FAERS Safety Report 20685569 (Version 1)
Quarter: 2022Q2

REPORT INFORMATION
  Report Type: Spontaneous
  Country: US (occurrence: None)
  Receive Date: 20220406
  Receipt Date: 20220406
  Transmission Date: 20220721
  Serious: Yes (Other)
  Sender: FDA-Public Use
  Company Number: None

PATIENT
  Age: 38 Year
  Sex: Female
  Weight: 103.5 kg

DRUGS (3)
  1. CYCLOBENZAPRINE [Suspect]
     Active Substance: CYCLOBENZAPRINE
     Indication: Product used for unknown indication
     Dosage: FREQUENCY : TWICE A DAY;?
     Route: 048
     Dates: start: 20220405, end: 20220406
  2. ADVAIR HFA [Suspect]
     Active Substance: FLUTICASONE PROPIONATE\SALMETEROL XINAFOATE
  3. ALBUTEROL [Suspect]
     Active Substance: ALBUTEROL

REACTIONS (8)
  - Palpitations [None]
  - Anxiety [None]
  - Stress [None]
  - Feeling jittery [None]
  - Fatigue [None]
  - Dry mouth [None]
  - Fear [None]
  - Impaired work ability [None]

NARRATIVE: CASE EVENT DATE: 20220406
